FAERS Safety Report 13695606 (Version 2)
Quarter: 2017Q3

REPORT INFORMATION
  Report Type: Report from Study
  Country: GR (occurrence: GR)
  Receive Date: 20170627
  Receipt Date: 20170703
  Transmission Date: 20171127
  Serious: Yes (Hospitalization)
  Sender: FDA-Public Use
  Company Number: GR-BIOGEN-2017BI00420801

PATIENT
  Sex: Male

DRUGS (4)
  1. SPINRAZA [Suspect]
     Active Substance: NUSINERSEN
     Dosage: 4TH DOSE ADMINISTERED IN GREECE
     Route: 065
     Dates: start: 20170303, end: 20170303
  2. SPINRAZA [Suspect]
     Active Substance: NUSINERSEN
     Indication: PRODUCT USED FOR UNKNOWN INDICATION
     Dosage: 1ST DOSE ADMINISTERED IN FRANCE
     Route: 065
     Dates: start: 20161220, end: 20161220
  3. SPINRAZA [Suspect]
     Active Substance: NUSINERSEN
     Dosage: 3RD DOSE ADMINISTERED IN FRANCE
     Route: 065
     Dates: start: 20170117, end: 20170117
  4. SPINRAZA [Suspect]
     Active Substance: NUSINERSEN
     Dosage: 2ND DOSE ADMINISTERED IN FRANCE
     Route: 065
     Dates: start: 20170102, end: 20170102

REACTIONS (1)
  - Dehydration [Unknown]

NARRATIVE: CASE EVENT DATE: 20170318
